FAERS Safety Report 17925956 (Version 4)
Quarter: 2021Q3

REPORT INFORMATION
  Report Type: Report from Study
  Country: JP (occurrence: JP)
  Receive Date: 20200623
  Receipt Date: 20210825
  Transmission Date: 20211014
  Serious: Yes (Death, Life-Threatening, Other)
  Sender: FDA-Public Use
  Company Number: JP-ALEXION PHARMACEUTICALS INC.-A202008422

PATIENT
  Age: 61 Year
  Sex: Female

DRUGS (3)
  1. ULTOMIRIS [Suspect]
     Active Substance: RAVULIZUMAB-CWVZ
     Indication: PAROXYSMAL NOCTURNAL HAEMOGLOBINURIA
     Dosage: 2700 MG, SINGLE
     Route: 042
     Dates: start: 20191107, end: 20191107
  2. ULTOMIRIS [Suspect]
     Active Substance: RAVULIZUMAB-CWVZ
     Dosage: 3300 MG, Q56
     Route: 042
     Dates: start: 20191121, end: 20201214
  3. ULTOMIRIS [Suspect]
     Active Substance: RAVULIZUMAB-CWVZ
     Dosage: 3000 MG, Q56
     Route: 042
     Dates: start: 20210208, end: 20210726

REACTIONS (4)
  - White blood cell count decreased [Recovering/Resolving]
  - Haemolysis [Not Recovered/Not Resolved]
  - Suspected COVID-19 [Fatal]
  - Staphylococcal infection [Recovering/Resolving]

NARRATIVE: CASE EVENT DATE: 20200320
